FAERS Safety Report 8133006 (Version 3)
Quarter: 2013Q1

REPORT INFORMATION
  Report Type: Spontaneous
  Country: US (occurrence: US)
  Receive Date: 20110913
  Receipt Date: 20130218
  Transmission Date: 20140127
  Serious: Yes (Other)
  Sender: FDA-Public Use
  Company Number: US-ROCHE-781548

PATIENT
  Sex: Female
  Weight: 79.4 kg

DRUGS (16)
  1. BONIVA [Suspect]
     Indication: OSTEOPENIA
     Dosage: DOSE: 150
     Route: 048
     Dates: start: 20100507, end: 20101213
  2. ACTONEL [Suspect]
     Indication: OSTEOPENIA
     Dosage: DOSE: 35
     Route: 048
     Dates: start: 20060310, end: 200804
  3. ZOMETA [Suspect]
     Indication: OSTEOPENIA
     Route: 042
     Dates: start: 20090423, end: 20100315
  4. POTASSIUM CHLORIDE [Concomitant]
     Route: 065
     Dates: start: 20100315
  5. LASIX [Concomitant]
     Indication: LYMPHOEDEMA
     Route: 065
     Dates: start: 20100315, end: 20100809
  6. SPIRIVA [Concomitant]
     Route: 065
     Dates: start: 20100315
  7. NORTRIPTYLINE [Concomitant]
     Route: 065
     Dates: start: 20110914
  8. SELENIUM [Concomitant]
     Route: 065
     Dates: start: 20110517
  9. CELEBREX [Concomitant]
     Route: 065
     Dates: start: 20101213
  10. VICODIN [Concomitant]
     Route: 065
     Dates: start: 20100219, end: 20110914
  11. NEUROMIN [Concomitant]
     Route: 048
     Dates: start: 20090423
  12. CALCIUM D 500 [Concomitant]
     Route: 065
     Dates: start: 20090423
  13. ATENOLOL [Concomitant]
  14. MILK THISTLE [Concomitant]
     Route: 065
     Dates: start: 20060305
  15. FLAXSEED OIL [Concomitant]
     Route: 065
     Dates: start: 20060305
  16. AROMASIN [Concomitant]
     Route: 065
     Dates: start: 20060802, end: 20110517

REACTIONS (7)
  - Exostosis [Unknown]
  - Arthritis [Unknown]
  - Bone pain [Not Recovered/Not Resolved]
  - Dysphagia [Unknown]
  - Pain in extremity [Unknown]
  - Gait disturbance [Unknown]
  - Bone pain [Unknown]
